FAERS Safety Report 9135665 (Version 1)
Quarter: 2013Q1

REPORT INFORMATION
  Report Type: Spontaneous
  Country: US (occurrence: US)
  Receive Date: 20130304
  Receipt Date: 20130304
  Transmission Date: 20140127
  Serious: No
  Sender: FDA-Public Use
  Company Number: US-ENDO PHARMACEUTICALS INC.-ENDC20110230

PATIENT
  Age: 67 Year
  Sex: Female

DRUGS (1)
  1. ENDOCET 10MG/325MG [Suspect]
     Indication: PAIN
     Dosage: 30/975 MG
     Route: 048
     Dates: start: 20110905, end: 20110908

REACTIONS (4)
  - Acne [Unknown]
  - Nervous system disorder [Unknown]
  - Vomiting [Unknown]
  - Pharyngeal oedema [Not Recovered/Not Resolved]
